FAERS Safety Report 23290442 (Version 9)
Quarter: 2024Q3

REPORT INFORMATION
  Report Type: Spontaneous
  Country: US (occurrence: US)
  Receive Date: 20231213
  Receipt Date: 20240716
  Transmission Date: 20241017
  Serious: No
  Sender: NOVARTIS
  Company Number: US-002147023-NVSC2023US264043

PATIENT
  Sex: Female

DRUGS (2)
  1. KESIMPTA [Suspect]
     Active Substance: OFATUMUMAB
     Indication: Product used for unknown indication
     Dosage: UNK, QMO (920 MG/0.4 ML)
     Route: 065
     Dates: start: 20231116
  2. KESIMPTA [Suspect]
     Active Substance: OFATUMUMAB
     Dosage: 20 MG, QMO
     Route: 065

REACTIONS (6)
  - Needle issue [Unknown]
  - Device issue [Unknown]
  - Hyperhidrosis [Unknown]
  - Anxiety [Unknown]
  - Nasal congestion [Unknown]
  - Product dose omission issue [Unknown]
